FAERS Safety Report 23993927 (Version 1)
Quarter: 2024Q2

REPORT INFORMATION
  Report Type: Other
  Country: LK (occurrence: LK)
  Receive Date: 20240620
  Receipt Date: 20240620
  Transmission Date: 20240716
  Serious: Yes (Death, Life-Threatening, Hospitalization, Other)
  Sender: FDA-Public Use
  Company Number: LK-Innocoll_Biotherapeutics-USA-POIINBT202400001

PATIENT
  Age: 27 Year
  Sex: Female
  Weight: 78 kg

DRUGS (2)
  1. POSIMIR [Suspect]
     Active Substance: BUPIVACAINE
     Indication: Spinal anaesthesia
     Dosage: 2.5 ML
     Route: 024
  2. LEVOTHYROXINE [Concomitant]
     Active Substance: LEVOTHYROXINE\LEVOTHYROXINE SODIUM
     Indication: Hypothyroidism

REACTIONS (20)
  - Cardiac arrest [Fatal]
  - Resuscitation [Recovered/Resolved with Sequelae]
  - Generalised tonic-clonic seizure [Not Recovered/Not Resolved]
  - New onset refractory status epilepticus [Not Recovered/Not Resolved]
  - Anaphylactoid syndrome of pregnancy [Not Recovered/Not Resolved]
  - Eclampsia [Not Recovered/Not Resolved]
  - Progressive myoclonic epilepsy [Not Recovered/Not Resolved]
  - Acidosis [Not Recovered/Not Resolved]
  - Rhabdomyolysis [Not Recovered/Not Resolved]
  - Hyperpyrexia [Not Recovered/Not Resolved]
  - Hyperthermia [Not Recovered/Not Resolved]
  - Cardiomyopathy [Not Recovered/Not Resolved]
  - Electrocardiogram ST segment elevation [Not Recovered/Not Resolved]
  - Uterine haemorrhage [Not Recovered/Not Resolved]
  - Sinus tachycardia [Not Recovered/Not Resolved]
  - Rhonchi [Not Recovered/Not Resolved]
  - Uterine atony [Not Recovered/Not Resolved]
  - Hypotension [Not Recovered/Not Resolved]
  - Cerebral disorder [Not Recovered/Not Resolved]
  - Bradycardia [Not Recovered/Not Resolved]

NARRATIVE: CASE EVENT DATE: 20240101
